FAERS Safety Report 5385175-2 (Version None)
Quarter: 2007Q3

REPORT INFORMATION
  Report Type: 
  Country: None (occurrence: None)
  Receive Date: 20070706
  Receipt Date: 20070103
  Transmission Date: 20080115
  Serious: Yes (Death)
  Sender: FDA-Public Use
  Company Number: M-07-0015

PATIENT
  Sex: Female

DRUGS (2)
  1. PACERONE [Suspect]
     Indication: ATRIAL FIBRILLATION
     Dosage: 200 MG, QD, PO
     Route: 048
     Dates: start: 20041021, end: 20041212
  2. PACERONE [Suspect]
     Indication: ATRIAL FIBRILLATION
     Dosage: 400 MG, QD, PO
     Route: 048
     Dates: start: 20040602, end: 20041020

REACTIONS (3)
  - ACUTE RESPIRATORY DISTRESS SYNDROME [None]
  - DYSPNOEA [None]
  - PULMONARY TOXICITY [None]
